FAERS Safety Report 16594731 (Version 2)
Quarter: 2019Q3

REPORT INFORMATION
  Report Type: Spontaneous
  Country: AU (occurrence: AU)
  Receive Date: 20190718
  Receipt Date: 20190819
  Transmission Date: 20191004
  Serious: Yes (Hospitalization)
  Sender: FDA-Public Use
  Company Number: AU-NOVOPROD-673247

PATIENT
  Sex: Male

DRUGS (1)
  1. RYZODEG 70/30 [Suspect]
     Active Substance: INSULIN ASPART\INSULIN DEGLUDEC
     Indication: TYPE 2 DIABETES MELLITUS
     Dosage: BD DOSE 44 UNITS MANE 12 UNITS DINNER; STOP DATE: CONTINUES TO DATE
     Route: 058
     Dates: start: 20190705

REACTIONS (3)
  - Hyperglycaemia [Recovering/Resolving]
  - Hospitalisation [Unknown]
  - Wrong technique in product usage process [Unknown]
